FAERS Safety Report 20425466 (Version 1)
Quarter: 2022Q1

REPORT INFORMATION
  Report Type: Report from Study
  Country: US (occurrence: US)
  Receive Date: 20220204
  Receipt Date: 20220204
  Transmission Date: 20220423
  Serious: No
  Sender: FDA-Public Use
  Company Number: US-EXELIXIS-CABO-21039125

PATIENT
  Sex: Female

DRUGS (2)
  1. COMETRIQ [Suspect]
     Active Substance: CABOZANTINIB S-MALATE
     Indication: Malignant respiratory tract neoplasm
     Dosage: 140 MG, QD (1X80 MG AND 3X20 MG)
     Route: 048
     Dates: start: 20210319, end: 20210330
  2. COMETRIQ [Suspect]
     Active Substance: CABOZANTINIB S-MALATE
     Indication: RET gene mutation

REACTIONS (11)
  - Anal blister [Unknown]
  - Flatulence [Unknown]
  - Pain in extremity [Unknown]
  - Oral pain [Unknown]
  - Abdominal pain upper [Unknown]
  - Hepatic enzyme increased [Unknown]
  - Hypertension [Unknown]
  - Dysphonia [Unknown]
  - Constipation [Unknown]
  - Decreased appetite [Unknown]
  - Off label use [Unknown]
